FAERS Safety Report 6370786-8 (Version None)
Quarter: 2009Q3

REPORT INFORMATION
  Report Type: 
  Country: None (occurrence: None)
  Receive Date: 20090923
  Receipt Date: 20070521
  Transmission Date: 20100115
  Serious: Yes (Other)
  Sender: FDA-Public Use
  Company Number: US-ASTRAZENECA-2006UW24109

PATIENT
  Age: 15211 Day
  Sex: Female
  Weight: 115.2 kg

DRUGS (23)
  1. SEROQUEL [Suspect]
     Indication: DEPRESSION
     Dosage: 25-450 MG
     Route: 048
     Dates: start: 19970101, end: 19980101
  2. SEROQUEL [Suspect]
     Route: 048
     Dates: start: 19981104
  3. SEROQUEL [Suspect]
     Route: 048
     Dates: start: 19990317
  4. SEROQUEL [Suspect]
     Route: 048
     Dates: start: 20040415
  5. SEROQUEL [Suspect]
     Dosage: 100MG 3 PO QHS
     Route: 048
     Dates: start: 20070102
  6. ZYPREXA [Concomitant]
     Dates: start: 19960101
  7. ACTOS [Concomitant]
     Dates: start: 20031125
  8. ATACAND HCT [Concomitant]
     Dates: start: 20031125
  9. BENZTROPINE MESYLATE [Concomitant]
     Route: 048
     Dates: start: 19970409
  10. BEXTRA [Concomitant]
     Dates: start: 20031125
  11. KLOR-CON [Concomitant]
     Dates: start: 20031125
  12. CLONAZEPAM [Concomitant]
     Dates: start: 20031125
  13. DEMADEX [Concomitant]
     Dates: start: 20031125
  14. GLUCOVANCE [Concomitant]
     Dosage: 2.5/500, TWO TABLET TWO TIMES A DAY
     Dates: start: 20031125
  15. LIPITOR [Concomitant]
     Dates: start: 20031125
  16. METHOCARBAMOL [Concomitant]
     Route: 048
     Dates: start: 19970409
  17. PREMARIN [Concomitant]
     Dates: start: 20031125
  18. PROMETHAZINE [Concomitant]
     Dates: start: 20031125
  19. PROTONIX [Concomitant]
     Dates: start: 20031125
  20. PROZAC [Concomitant]
     Dosage: 10MG-20MG
     Dates: start: 19981104
  21. SINGULAIR [Concomitant]
     Dates: start: 20031125
  22. TOPROL-XL [Concomitant]
     Dates: start: 20031125
  23. VALIUM [Concomitant]
     Dates: start: 19981104

REACTIONS (4)
  - DIABETES MELLITUS [None]
  - INSULIN-REQUIRING TYPE 2 DIABETES MELLITUS [None]
  - NEUROLEPTIC MALIGNANT SYNDROME [None]
  - TARDIVE DYSKINESIA [None]
